FAERS Safety Report 14555112 (Version 1)
Quarter: 2018Q1

REPORT INFORMATION
  Report Type: Spontaneous
  Country: GB (occurrence: GB)
  Receive Date: 20180220
  Receipt Date: 20180220
  Transmission Date: 20180509
  Serious: Yes (Other)
  Sender: FDA-Public Use
  Company Number: PHHY2018GB026280

PATIENT

DRUGS (5)
  1. TOPOTECAN HYDROCHLORIDE. [Suspect]
     Active Substance: TOPOTECAN HYDROCHLORIDE
     Indication: RETINOBLASTOMA
     Dosage: 1 MG, CYCLIC (1,2,3)
     Route: 013
  2. MELPHALAN. [Suspect]
     Active Substance: MELPHALAN
     Indication: RETINOBLASTOMA
     Dosage: 5 MG, CYCLIC (3)
     Route: 013
  3. ETOPOSIDE. [Concomitant]
     Active Substance: ETOPOSIDE
     Indication: RETINOBLASTOMA
     Route: 065
  4. CARBOPLATIN. [Concomitant]
     Active Substance: CARBOPLATIN
     Indication: RETINOBLASTOMA
     Route: 065
  5. VINCRISTINE [Concomitant]
     Active Substance: VINCRISTINE
     Indication: RETINOBLASTOMA
     Route: 065

REACTIONS (2)
  - VIth nerve paralysis [Unknown]
  - Ocular vascular disorder [Unknown]
